FAERS Safety Report 4598317-3 (Version None)
Quarter: 2005Q1

REPORT INFORMATION
  Report Type: 
  Country: None (occurrence: None)
  Receive Date: 20050302
  Receipt Date: 20050302
  Transmission Date: 20050727
  Serious: No
  Sender: FDA-Public Use
  Company Number: None

PATIENT
  Age: 82 Year
  Sex: Male
  Weight: 69.8539 kg

DRUGS (11)
  1. TEQUIN [Suspect]
     Indication: UPPER RESPIRATORY TRACT INFECTION
     Dosage: 400 MG ORALLY DAILY
     Route: 048
     Dates: start: 20050225, end: 20050301
  2. BENZONATATE [Concomitant]
  3. CARVEDILOL [Concomitant]
  4. GUAIFENESIN [Concomitant]
  5. FUROSEMIDE [Concomitant]
  6. GLYBURIDE [Concomitant]
  7. LISINOPRIL [Concomitant]
  8. LORATADINE [Concomitant]
  9. METFORMIN HCL [Concomitant]
  10. TESTOSTERONE [Concomitant]
  11. WARFARIN SODIUM [Concomitant]

REACTIONS (2)
  - HYPOGLYCAEMIA [None]
  - LOSS OF CONSCIOUSNESS [None]
